FAERS Safety Report 24709564 (Version 1)
Quarter: 2024Q4

REPORT INFORMATION
  Report Type: Spontaneous
  Country: JP (occurrence: JP)
  Receive Date: 20241209
  Receipt Date: 20241209
  Transmission Date: 20250115
  Serious: Yes (Other)
  Sender: SANDOZ
  Company Number: JP-SANDOZ-SDZ2024JP100773

PATIENT
  Age: 13 Year
  Sex: Male

DRUGS (1)
  1. SOMATROPIN [Suspect]
     Active Substance: SOMATROPIN
     Indication: Dwarfism
     Dosage: UNK
     Route: 058
     Dates: start: 202405

REACTIONS (1)
  - Retinal tear [Recovered/Resolved]
